FAERS Safety Report 8613151-2 (Version None)
Quarter: 2012Q3

REPORT INFORMATION
  Report Type: 
  Country: None (occurrence: None)
  Receive Date: 20120822
  Receipt Date: 20120731
  Transmission Date: 20120928
  Serious: Yes (Hospitalization)
  Sender: FDA-Public Use
  Company Number: JP-009507513-1208JPN000283

PATIENT

DRUGS (10)
  1. TELAVIC [Suspect]
     Indication: HEPATITIS C
     Dosage: 2250 MG, ONCE
     Route: 048
     Dates: start: 20120210, end: 20120307
  2. TELAVIC [Suspect]
     Dosage: 1000 MG, ONCE
     Route: 048
     Dates: start: 20120417, end: 20120503
  3. ALLOPURINOL [Suspect]
     Indication: HYPERURICAEMIA
     Dosage: 200 MG, ONCE
     Route: 048
     Dates: start: 20120308, end: 20120713
  4. URSO 250 [Concomitant]
     Indication: HEPATITIS C
     Dosage: 600 MG, ONCE
     Route: 048
     Dates: end: 20120308
  5. REBETOL [Suspect]
     Dosage: 200 MG, ONCE
     Route: 048
     Dates: start: 20120225, end: 20120713
  6. TELAVIC [Suspect]
     Dosage: 1500 MG, ONCE
     Route: 048
     Dates: start: 20120308, end: 20120416
  7. REBETOL [Suspect]
     Dosage: 400 MG, ONCE
     Route: 048
     Dates: start: 20120222, end: 20120224
  8. REBETOL [Suspect]
     Indication: HEPATITIS C
     Dosage: 800 MG, ONCE
     Route: 048
     Dates: start: 20120210, end: 20120220
  9. PEG-INTRON [Suspect]
     Indication: HEPATITIS C
     Dosage: 1.5MCG/KG/WEEK
     Route: 058
     Dates: start: 20120210, end: 20120628
  10. REBETOL [Suspect]
     Dosage: 600 MG, ONCE
     Route: 048
     Dates: start: 20120221, end: 20120221

REACTIONS (1)
  - DRUG ERUPTION [None]
